FAERS Safety Report 5911443-9 (Version None)
Quarter: 2008Q4

REPORT INFORMATION
  Report Type: 
  Country: None (occurrence: None)
  Receive Date: 20081002
  Receipt Date: 20080924
  Transmission Date: 20090506
  Serious: Yes (Disabling)
  Sender: FDA-Public Use
  Company Number: APP200800438

PATIENT
  Age: 54 Year
  Sex: Male
  Weight: 111.1313 kg

DRUGS (4)
  1. SENSORCAINE [Suspect]
     Indication: MUSCULOSKELETAL PAIN
     Dosage: 120 ML, 0.5% CONTINUOUS VIA PAIN PUMP
     Dates: start: 20060511
  2. STRYKER  PAIN [Suspect]
     Indication: MUSCULOSKELETAL PAIN
     Dates: start: 20060511
  3. CLINDAMYCIN HCL [Concomitant]
  4. LACTATED RINGERS (FLEBOBAG RING LACT) [Concomitant]

REACTIONS (5)
  - CHONDROLYSIS [None]
  - FALL [None]
  - HYPOAESTHESIA [None]
  - INJECTION SITE ANAESTHESIA [None]
  - MUSCULOSKELETAL PAIN [None]
